FAERS Safety Report 9706499 (Version 3)
Quarter: 2014Q2

REPORT INFORMATION
  Report Type: Report from Study
  Country: DE (occurrence: DE)
  Receive Date: 20131125
  Receipt Date: 20140521
  Transmission Date: 20141212
  Serious: Yes (Death, Hospitalization)
  Sender: FDA-Public Use
  Company Number: DE-ROCHE-1303761

PATIENT
  Age: 62 Year
  Sex: Female
  Weight: 105 kg

DRUGS (14)
  1. BEVACIZUMAB [Suspect]
     Indication: BREAST CANCER
     Route: 042
     Dates: start: 20111122
  2. BEVACIZUMAB [Suspect]
     Route: 042
     Dates: start: 20121026
  3. BEVACIZUMAB [Suspect]
     Route: 042
     Dates: start: 20130705
  4. BEVACIZUMAB [Suspect]
     Route: 042
     Dates: start: 20131001, end: 20131001
  5. NITRENDIPIN [Concomitant]
     Route: 065
     Dates: start: 20121026, end: 20121026
  6. PACLITAXEL [Concomitant]
     Indication: BREAST CANCER
     Route: 065
     Dates: start: 20111122, end: 20120312
  7. PACLITAXEL [Concomitant]
     Route: 065
     Dates: start: 20111213
  8. PACLITAXEL [Concomitant]
     Route: 065
     Dates: start: 20120103
  9. PACLITAXEL [Concomitant]
     Route: 065
     Dates: start: 20120130
  10. PACLITAXEL [Concomitant]
     Route: 065
     Dates: start: 20120220
  11. PACLITAXEL [Concomitant]
     Route: 065
     Dates: start: 20120312
  12. FUROSEMIDE [Concomitant]
     Indication: PAIN
     Route: 042
  13. HALDOL [Concomitant]
     Dosage: 20 MG IN 25 MG NACL
     Route: 065
  14. MORPHINE [Concomitant]

REACTIONS (4)
  - Malignant neoplasm progression [Fatal]
  - General physical health deterioration [Fatal]
  - Facial paresis [Fatal]
  - Trigeminal neuralgia [Fatal]
